FAERS Safety Report 7577946 (Version 2)
Quarter: 2017Q4

REPORT INFORMATION
  Report Type: Report from Study
  Country: BR (occurrence: BR)
  Receive Date: 20100909
  Receipt Date: 20171109
  Transmission Date: 20180321
  Serious: Yes (Other)
  Sender: FDA-Public Use
  Company Number: BR-ROCHE-724492

PATIENT

DRUGS (3)
  1. PEGINTERFERON ALFA-2B [Suspect]
     Active Substance: PEGINTERFERON ALFA-2B
     Indication: CHRONIC HEPATITIS C
     Dosage: DOSE: 1.5 UG/KG PER WEEK.
     Route: 065
  2. PEG-INTERFERON ALFA 2A [Suspect]
     Active Substance: PEGINTERFERON ALFA-2A
     Indication: CHRONIC HEPATITIS C
     Route: 065
  3. RIBAVIRIN. [Suspect]
     Active Substance: RIBAVIRIN
     Indication: CHRONIC HEPATITIS C
     Dosage: DOSE: 1 OR 1.25 GRAM/ DAY.
     Route: 065

REACTIONS (19)
  - Hypothyroidism [Unknown]
  - Infection [Unknown]
  - Thrombocytopenia [Unknown]
  - Dyspnoea [Unknown]
  - Weight decreased [Unknown]
  - Nausea [Unknown]
  - Insomnia [Unknown]
  - Neutropenia [Unknown]
  - Influenza like illness [Unknown]
  - Decreased appetite [Unknown]
  - Anaemia [Unknown]
  - Dermatitis [Unknown]
  - Alopecia [Unknown]
  - Panic attack [Unknown]
  - Depression [Unknown]
  - Visual acuity reduced [Unknown]
  - Dizziness [Unknown]
  - Irritability [Unknown]
  - Diarrhoea [Unknown]
